FAERS Safety Report 9809297 (Version 1)
Quarter: 2014Q1

REPORT INFORMATION
  Report Type: Spontaneous
  Country: US (occurrence: US)
  Receive Date: 20140110
  Receipt Date: 20140110
  Transmission Date: 20141002
  Serious: Yes (Other)
  Sender: FDA-Public Use
  Company Number: US-ASTRAZENECA-2014SE00677

PATIENT
  Age: 60 Year
  Sex: Male
  Weight: 99.8 kg

DRUGS (2)
  1. SYMBICORT PMDI [Suspect]
     Indication: ASTHMA
     Dosage: 160 4.5 MCG 1 PUFF BID
     Route: 055
  2. SYMBICORT PMDI [Suspect]
     Indication: ASTHMA
     Dosage: 160 4.5 MCG 1 PUFF DAILY
     Route: 055

REACTIONS (3)
  - Tendon rupture [Unknown]
  - Blood pressure increased [Unknown]
  - Off label use [Unknown]
